FAERS Safety Report 26036913 (Version 2)
Quarter: 2025Q4

REPORT INFORMATION
  Report Type: Spontaneous
  Country: US (occurrence: US)
  Receive Date: 20251112
  Receipt Date: 20251118
  Transmission Date: 20260118
  Serious: Yes (Other)
  Sender: PFIZER
  Company Number: US-PFIZER INC-202500221455

PATIENT
  Age: 84 Year
  Sex: Female

DRUGS (10)
  1. IBRANCE [Suspect]
     Active Substance: PALBOCICLIB
     Dosage: 75 MG, 1X/DAY (ONCE DAILY)
     Dates: start: 20251109
  2. FASLODEX [Concomitant]
     Active Substance: FULVESTRANT
     Dosage: 250MG/5MI PFS X 2
     Route: 030
     Dates: start: 20251105
  3. ACETAMINOPHEN [Concomitant]
     Active Substance: ACETAMINOPHEN
     Dosage: UNK
     Route: 048
     Dates: start: 20251104
  4. LOSARTAN POTASSIUM [Concomitant]
     Active Substance: LOSARTAN POTASSIUM
     Dosage: UNK
     Dates: start: 20251104
  5. OMEPRAZOLE [Concomitant]
     Active Substance: OMEPRAZOLE
     Dosage: UNK
     Dates: start: 20251104
  6. VITAMIN D3 [Concomitant]
     Active Substance: CHOLECALCIFEROL
     Dosage: UNK
     Dates: start: 20251104
  7. BIOTIN [Concomitant]
     Active Substance: BIOTIN
     Dosage: UNK
     Dates: start: 20251104
  8. PROLIA [Concomitant]
     Active Substance: DENOSUMAB
     Dosage: UNK
     Dates: start: 20251104
  9. CARVEDILOL [Concomitant]
     Active Substance: CARVEDILOL
     Dosage: UNK
     Route: 048
     Dates: start: 20251104
  10. DIPHENHYDRAMINE [Concomitant]
     Active Substance: DIPHENHYDRAMINE
     Dosage: UNK
     Dates: start: 20251104

REACTIONS (2)
  - Metastases to liver [Unknown]
  - Pruritus [Unknown]

NARRATIVE: CASE EVENT DATE: 20251109
